FAERS Safety Report 15772137 (Version 1)
Quarter: 2018Q4

REPORT INFORMATION
  Report Type: Spontaneous
  Country: US (occurrence: US)
  Receive Date: 20181228
  Receipt Date: 20181228
  Transmission Date: 20190205
  Serious: No
  Sender: FDA-Public Use
  Company Number: US-SA-2018SA394453

PATIENT
  Age: 2 Year
  Sex: Male
  Weight: 10.43 kg

DRUGS (8)
  1. STERILE WATER [Concomitant]
     Active Substance: WATER
     Dosage: 1 EACH AS DIRECTED
     Route: 042
     Dates: start: 20180608
  2. LIDOCAINE. [Concomitant]
     Active Substance: LIDOCAINE
     Indication: PREMEDICATION
     Dosage: 2.5% PRIOR TO TREATMENT
     Route: 061
     Dates: start: 20180608
  3. NORMAL SALINE [Concomitant]
     Active Substance: SODIUM CHLORIDE
     Dosage: 0.9% AD DIRECTED
     Route: 042
     Dates: start: 20180608
  4. CEREZYME [Suspect]
     Active Substance: IMIGLUCERASE
     Indication: GAUCHER^S DISEASE
     Dosage: 800 UNITS, EVERY 2 WEEKS
     Route: 041
     Dates: start: 20180612
  5. AMOXICILLIN. [Concomitant]
     Active Substance: AMOXICILLIN
     Dosage: 5 ML, BID
     Route: 048
     Dates: start: 20181202
  6. EPINEPHRINE. [Concomitant]
     Active Substance: EPINEPHRINE
     Indication: ANAPHYLACTIC REACTION
     Dosage: 0.15 MG
     Route: 030
     Dates: start: 20180608
  7. HEPARIN [Concomitant]
     Active Substance: HEPARIN SODIUM
     Dosage: 100 UNK/ML AS DIRECTED
     Route: 042
     Dates: start: 20180608
  8. SODIUM CHLORIDE. [Concomitant]
     Active Substance: SODIUM CHLORIDE
     Dosage: 0.9% AS DIRECTED
     Route: 042
     Dates: start: 20180608

REACTIONS (1)
  - Upper respiratory tract infection [Unknown]
